FAERS Safety Report 25118520 (Version 1)
Quarter: 2025Q1

REPORT INFORMATION
  Report Type: Spontaneous
  Country: FR (occurrence: FR)
  Receive Date: 20250325
  Receipt Date: 20250325
  Transmission Date: 20250409
  Serious: Yes (Death, Hospitalization, Other)
  Sender: PURACAP PHARMACEUTICAL LLC
  Company Number: FR-PURACAP-FR-2025EPCLIT00312

PATIENT
  Age: 90 Year
  Sex: Female

DRUGS (1)
  1. ALLOPURINOL [Suspect]
     Active Substance: ALLOPURINOL
     Indication: Product used for unknown indication
     Route: 065

REACTIONS (3)
  - Pancreatitis acute [Fatal]
  - Fulminant type 1 diabetes mellitus [Fatal]
  - Drug reaction with eosinophilia and systemic symptoms [Fatal]
